FAERS Safety Report 8584103-6 (Version None)
Quarter: 2012Q3

REPORT INFORMATION
  Report Type: 
  Country: None (occurrence: None)
  Receive Date: 20120810
  Receipt Date: 20120723
  Transmission Date: 20120928
  Serious: Yes (Hospitalization)
  Sender: FDA-Public Use
  Company Number: US-009507513-1207USA010698

PATIENT

DRUGS (9)
  1. TELAPREVIR [Suspect]
     Route: 048
  2. LISINOPRIL [Concomitant]
     Dosage: UNK, QD
     Route: 048
  3. COPEGUS [Suspect]
     Dosage: UNK
     Route: 048
  4. ZOCOR [Suspect]
     Route: 048
  5. METOPROLOL TARTRATE [Concomitant]
     Dosage: UNK, QD
     Route: 048
  6. ASPIRIN [Concomitant]
     Dosage: UNK, QD
     Route: 048
  7. ZOCOR [Concomitant]
     Route: 048
  8. PEGASYS [Suspect]
     Route: 058
  9. OMEPRAZOLE [Concomitant]
     Dosage: UNK, QD
     Route: 048

REACTIONS (2)
  - MUSCULAR WEAKNESS [None]
  - RHABDOMYOLYSIS [None]
